FAERS Safety Report 5026273-2 (Version None)
Quarter: 2006Q2

REPORT INFORMATION
  Report Type: 
  Country: None (occurrence: None)
  Receive Date: 20060608
  Receipt Date: 20060531
  Transmission Date: 20061013
  Serious: Yes (Hospitalization, Other)
  Sender: FDA-Public Use
  Company Number: 2005025744

PATIENT
  Age: 12 Year
  Sex: Male

DRUGS (10)
  1. VIAGRA [Suspect]
     Indication: PULMONARY HYPERTENSION
     Dosage: 25 MG, 1 IN 1 D, ORAL
     Route: 048
     Dates: start: 20040101
  2. DIGOXIN [Concomitant]
  3. CAPTOPRIL [Concomitant]
  4. PHENOBARBITAL TAB [Concomitant]
  5. WARFARIN (WARFARIN) [Concomitant]
  6. FLUOXETINE [Concomitant]
  7. BACTRIM [Concomitant]
  8. BIOVIR (LAMIVUDINE, ZIDOVUDINE) [Concomitant]
  9. KALETRA [Concomitant]
  10. ALL OTHER THERAPEUTIC PRODUCTS (ALL OTHER THERAPEUTIC PRODUCTS) [Concomitant]

REACTIONS (6)
  - CEREBROVASCULAR ACCIDENT [None]
  - CONVULSION [None]
  - DISEASE PROGRESSION [None]
  - HAEMORRHAGIC STROKE [None]
  - ISCHAEMIA [None]
  - MOVEMENT DISORDER [None]
